FAERS Safety Report 18309386 (Version 1)
Quarter: 2020Q3

REPORT INFORMATION
  Report Type: Spontaneous
  Country: US (occurrence: US)
  Receive Date: 20200924
  Receipt Date: 20200924
  Transmission Date: 20201103
  Serious: Yes (Other)
  Sender: FDA-Public Use
  Company Number: US-AMERICAN REGENT INC-2020001938

PATIENT
  Age: 47 Year
  Sex: Female

DRUGS (3)
  1. XARELTO [Concomitant]
     Active Substance: RIVAROXABAN
     Indication: ANTICOAGULANT THERAPY
     Dosage: UNK
     Route: 048
  2. VENOFER [Suspect]
     Active Substance: IRON SUCROSE
     Indication: PRODUCT USED FOR UNKNOWN INDICATION
     Dosage: FIRST DOSE OF VENOFER, UNK
     Route: 065
     Dates: start: 20200828, end: 20200828
  3. VENOFER [Suspect]
     Active Substance: IRON SUCROSE
     Dosage: SECOND  DOSE OF VENOFER, UNK
     Route: 065
     Dates: start: 20200902, end: 20200902

REACTIONS (2)
  - Constipation [Recovering/Resolving]
  - Dyspnoea [Unknown]

NARRATIVE: CASE EVENT DATE: 20200828
